FAERS Safety Report 9478412 (Version 3)
Quarter: 2013Q3

REPORT INFORMATION
  Report Type: Spontaneous
  Country: LB (occurrence: LB)
  Receive Date: 20130827
  Receipt Date: 20130920
  Transmission Date: 20140515
  Serious: Yes (Other)
  Sender: FDA-Public Use
  Company Number: LB-JNJFOC-20130810777

PATIENT
  Age: 43 Year
  Sex: Male
  Weight: 80 kg

DRUGS (2)
  1. REMICADE [Suspect]
     Indication: COLITIS ULCERATIVE
     Dosage: STARTED 8 MONTHS AGO, TOTAL DOSE 400 MG
     Route: 042
     Dates: start: 2011, end: 201307
  2. AZATHIOPRIN [Suspect]
     Indication: COLITIS ULCERATIVE
     Route: 065
     Dates: start: 2011

REACTIONS (1)
  - Plasma cell myeloma [Recovering/Resolving]
